FAERS Safety Report 4316167-X (Version None)
Quarter: 2004Q1

REPORT INFORMATION
  Report Type: 
  Country: None (occurrence: None)
  Receive Date: 20040312
  Receipt Date: 20040304
  Transmission Date: 20041129
  Serious: Yes (Hospitalization)
  Sender: FDA-Public Use
  Company Number: PHBS2004GT03078

PATIENT
  Age: 60 Year
  Sex: Female

DRUGS (2)
  1. ZELMAC [Suspect]
     Indication: IRRITABLE BOWEL SYNDROME
     Dosage: 6 MG, BID
     Route: 048
  2. ANTIHYPERTENSIVES [Concomitant]

REACTIONS (3)
  - ABDOMINAL DISTENSION [None]
  - HYPERHIDROSIS [None]
  - PALLOR [None]
